FAERS Safety Report 5128890-8 (Version None)
Quarter: 2006Q4

REPORT INFORMATION
  Report Type: 
  Country: None (occurrence: None)
  Receive Date: 20061017
  Receipt Date: 20060523
  Transmission Date: 20070319
  Serious: No
  Sender: FDA-Public Use
  Company Number: US-GLAXOSMITHKLINE-A0606668A

PATIENT
  Age: 30 Month
  Sex: Female

DRUGS (1)
  1. CEFTIN [Suspect]
     Dosage: 1TSP TWICE PER DAY
     Route: 048
     Dates: start: 20060522, end: 20060523

REACTIONS (1)
  - VOMITING [None]
